FAERS Safety Report 23904748 (Version 3)
Quarter: 2024Q3

REPORT INFORMATION
  Report Type: Report from Study
  Country: BE (occurrence: BE)
  Receive Date: 20240527
  Receipt Date: 20240724
  Transmission Date: 20241016
  Serious: Yes (Other)
  Sender: ABBVIE
  Company Number: BE-JNJFOC-20240570954

PATIENT
  Age: 69 Year
  Sex: Male

DRUGS (1)
  1. IBRUTINIB [Suspect]
     Active Substance: IBRUTINIB
     Indication: Mantle cell lymphoma
     Route: 048
     Dates: start: 20190617, end: 20200302

REACTIONS (1)
  - Type 2 diabetes mellitus [Recovering/Resolving]

NARRATIVE: CASE EVENT DATE: 20200221
